FAERS Safety Report 8801461 (Version 2)
Quarter: 2012Q4

REPORT INFORMATION
  Report Type: 
  Country: US (occurrence: US)
  Receive Date: 20120921
  Receipt Date: 20120928
  Transmission Date: 20130627
  Serious: Yes (Hospitalization)
  Sender: FDA-Public Use
  Company Number: US-BAYER-2012-097775

PATIENT
  Age: 50 Year
  Sex: Female

DRUGS (10)
  1. YAZ [Suspect]
     Indication: PREMENSTRUAL SYNDROME
  2. YASMIN [Suspect]
  3. OCELLA [Suspect]
  4. PRILOSEC [Concomitant]
  5. XANAX [Concomitant]
  6. LEXAPRO [Concomitant]
  7. SEROQUEL [Concomitant]
  8. ONE A DAY [Concomitant]
  9. TYLENOL [Concomitant]
  10. OXYCODONE [Concomitant]

REACTIONS (2)
  - Injury [None]
  - Pulmonary embolism [None]
